FAERS Safety Report 5130566-8 (Version None)
Quarter: 2006Q4

REPORT INFORMATION
  Report Type: 
  Country: None (occurrence: None)
  Receive Date: 20061019
  Receipt Date: 20061010
  Transmission Date: 20070319
  Serious: Yes (Other)
  Sender: FDA-Public Use
  Company Number: US-AVENTIS-200618487US

PATIENT
  Sex: Female

DRUGS (12)
  1. LANTUS [Suspect]
     Indication: DIABETES MELLITUS INSULIN-DEPENDENT
     Dates: start: 20060101
  2. OPTICLIK (INSULIN INJECTION PEN) [Suspect]
     Dates: start: 20060101
  3. DECADRON                           /00016001/ [Suspect]
     Dosage: DOSE: UNK
     Route: 042
     Dates: start: 20060726
  4. NOVOLOG [Concomitant]
     Dosage: DOSE: UNK
  5. TAXOL [Concomitant]
     Dosage: DOSE: UNK
  6. HERCEPTIN [Concomitant]
     Dosage: DOSE: UNK
  7. LIPITOR [Concomitant]
     Dosage: DOSE: UNK
  8. LISINOPRIL [Concomitant]
     Dosage: DOSE: UNK
  9. HYDROCHLOROTHIAZIDE [Concomitant]
     Dosage: DOSE: UNK
  10. PRANDIN                            /00882701/ [Concomitant]
     Dosage: DOSE: UNK
  11. ALPRAZOLAM [Concomitant]
     Dosage: DOSE: UNK
  12. M.V.I. [Concomitant]
     Dosage: DOSE: UNK

REACTIONS (6)
  - BLOOD GLUCOSE INCREASED [None]
  - BREAST CANCER [None]
  - BREAST CANCER FEMALE [None]
  - DIABETES MELLITUS INSULIN-DEPENDENT [None]
  - PHARMACEUTICAL PRODUCT COMPLAINT [None]
  - POOR QUALITY DRUG ADMINISTERED [None]
